FAERS Safety Report 9416308 (Version 2)
Quarter: 2013Q3

REPORT INFORMATION
  Report Type: Spontaneous
  Country: US (occurrence: None)
  Receive Date: 20130718
  Receipt Date: 20130812
  Transmission Date: 20140515
  Serious: Yes (Hospitalization, Other)
  Sender: FDA-Public Use
  Company Number: JPI-P-033624

PATIENT
  Age: 41 Year
  Sex: Female

DRUGS (2)
  1. XYREM (500 MILLIGRAM/MILLILITERS, SOLUTION) (SODIUM OXYBATE) [Suspect]
     Indication: HYPERSOMNIA
     Dosage: (4.5GM (2.25GM, 2 IN 1 D), ORAL
     Route: 048
     Dates: start: 20130425, end: 2013
  2. UNSPECIFIED INGREDIENT [Concomitant]

REACTIONS (1)
  - Loss of consciousness [None]
